FAERS Safety Report 20835197 (Version 1)
Quarter: 2022Q2

REPORT INFORMATION
  Report Type: Spontaneous
  Country: US (occurrence: None)
  Receive Date: 20220516
  Receipt Date: 20220516
  Transmission Date: 20220721
  Serious: Yes (Other)
  Sender: FDA-Public Use
  Company Number: None

PATIENT
  Age: 45 Year
  Sex: Female
  Weight: 66.6 kg

DRUGS (1)
  1. AJOVY [Suspect]
     Active Substance: FREMANEZUMAB-VFRM
     Indication: Migraine prophylaxis
     Dates: start: 20220502, end: 20220502

REACTIONS (4)
  - Alopecia [None]
  - Rash papular [None]
  - Weight increased [None]
  - Erythema [None]

NARRATIVE: CASE EVENT DATE: 20220502
